FAERS Safety Report 9146185 (Version 4)
Quarter: 2013Q3

REPORT INFORMATION
  Report Type: Spontaneous
  Country: US (occurrence: US)
  Receive Date: 20130307
  Receipt Date: 20130808
  Transmission Date: 20140515
  Serious: Yes (Other)
  Sender: FDA-Public Use
  Company Number: US-PFIZER INC-2013073747

PATIENT
  Age: 88 Year
  Sex: Female

DRUGS (1)
  1. TOVIAZ [Suspect]
     Indication: HYPERTONIC BLADDER
     Dosage: UNK
     Dates: end: 20130526

REACTIONS (5)
  - Balance disorder [Unknown]
  - Hearing impaired [Unknown]
  - Dry mouth [Unknown]
  - Urge incontinence [Unknown]
  - Drug effect incomplete [Unknown]
